FAERS Safety Report 8607177 (Version 3)
Quarter: 2013Q4

REPORT INFORMATION
  Report Type: Spontaneous
  Country: US (occurrence: US)
  Receive Date: 20120611
  Receipt Date: 20131129
  Transmission Date: 20140711
  Serious: Yes (Hospitalization, Other)
  Sender: FDA-Public Use
  Company Number: US-ASTRAZENECA-2012SE35376

PATIENT
  Age: 54 Year
  Sex: Female
  Weight: 99.3 kg

DRUGS (23)
  1. NEXIUM [Suspect]
     Indication: GASTROOESOPHAGEAL REFLUX DISEASE
     Route: 048
  2. NEXIUM [Suspect]
     Indication: GASTROOESOPHAGEAL REFLUX DISEASE
     Route: 048
     Dates: start: 20110601
  3. NEXIUM [Suspect]
     Indication: GASTROOESOPHAGEAL REFLUX DISEASE
     Route: 048
     Dates: start: 20050101
  4. PRILOSEC [Suspect]
     Route: 048
  5. PRAVASTATIN SODIUM [Concomitant]
     Dates: start: 20111130
  6. PROTONIX [Concomitant]
  7. PREVACID [Concomitant]
  8. ACIPHEX [Concomitant]
  9. PEPCID [Concomitant]
  10. TAGAMET [Concomitant]
  11. PEPTO BISMOL [Concomitant]
  12. TUMS [Concomitant]
  13. ALKA SELTZER [Concomitant]
  14. MILK OF MAGNESIA [Concomitant]
  15. GAVISCON [Concomitant]
  16. NORVASC [Concomitant]
  17. PROMETHAZINE [Concomitant]
  18. PREDNISONE [Concomitant]
  19. TRAMADOL [Concomitant]
  20. VYTORIN [Concomitant]
  21. POTASSIUM [Concomitant]
  22. DIOVAN [Concomitant]
  23. MAGNESIUM [Concomitant]

REACTIONS (15)
  - Gastric disorder [Unknown]
  - Back disorder [Unknown]
  - Musculoskeletal disorder [Unknown]
  - Cerebrovascular accident [Unknown]
  - Osteoporosis [Unknown]
  - Ankle fracture [Unknown]
  - Lower limb fracture [Unknown]
  - Foot fracture [Unknown]
  - Arthritis [Unknown]
  - Cardiovascular disorder [Unknown]
  - Rheumatoid arthritis [Unknown]
  - Ligament sprain [Unknown]
  - Exostosis [Unknown]
  - Osteoarthritis [Unknown]
  - Diabetes mellitus [Unknown]
